FAERS Safety Report 11889115 (Version 1)
Quarter: 2016Q1

REPORT INFORMATION
  Report Type: Spontaneous
  Country: US (occurrence: None)
  Receive Date: 20160104
  Receipt Date: 20160104
  Transmission Date: 20160526
  Serious: Yes (Other)
  Sender: FDA-Public Use
  Company Number: None

PATIENT
  Age: 54 Year
  Sex: Male
  Weight: 101.61 kg

DRUGS (13)
  1. OMPERAZOLE [Concomitant]
     Active Substance: OMEPRAZOLE
  2. LISINOPRIL. [Concomitant]
     Active Substance: LISINOPRIL
  3. LEVOTHYROXIN [Concomitant]
     Active Substance: LEVOTHYROXINE
  4. METFORMIN [Concomitant]
     Active Substance: METFORMIN HYDROCHLORIDE
  5. ATORVASTATIN [Concomitant]
     Active Substance: ATORVASTATIN
  6. LYRICA [Suspect]
     Active Substance: PREGABALIN
     Indication: SPINAL PAIN
     Route: 048
     Dates: start: 20151227, end: 20151231
  7. LYRICA [Suspect]
     Active Substance: PREGABALIN
     Indication: DIABETIC NEUROPATHY
     Route: 048
     Dates: start: 20151227, end: 20151231
  8. HYDROCODONE [Concomitant]
     Active Substance: HYDROCODONE
  9. METOPROLOL. [Concomitant]
     Active Substance: METOPROLOL
  10. AMLODIPINE [Concomitant]
     Active Substance: AMLODIPINE BESYLATE
  11. ASPIRIN. [Concomitant]
     Active Substance: ASPIRIN
  12. LYRICA [Concomitant]
     Active Substance: PREGABALIN
  13. CENTRUM TYPE MULTIVITAMIN [Concomitant]

REACTIONS (10)
  - Dyspnoea [None]
  - Dizziness [None]
  - Mouth swelling [None]
  - Cough [None]
  - Swollen tongue [None]
  - Swelling face [None]
  - Tonsillar disorder [None]
  - Angioedema [None]
  - Feeling abnormal [None]
  - Pharyngeal oedema [None]

NARRATIVE: CASE EVENT DATE: 20151231
